FAERS Safety Report 23396844 (Version 3)
Quarter: 2024Q1

REPORT INFORMATION
  Report Type: Spontaneous
  Country: US (occurrence: US)
  Receive Date: 20240112
  Receipt Date: 20240319
  Transmission Date: 20240410
  Serious: No
  Sender: FDA-Public Use
  Company Number: US-PFIZER INC-202300450874

PATIENT
  Age: 44 Year
  Sex: Female
  Weight: 61.69 kg

DRUGS (2)
  1. DEPO-PROVERA [Suspect]
     Active Substance: MEDROXYPROGESTERONE ACETATE
     Indication: Contraception
     Dosage: 104MG SUBCUTANEOUSLY EVERY THREE MONTHS
     Route: 058
     Dates: start: 20231214
  2. DEPO-PROVERA [Suspect]
     Active Substance: MEDROXYPROGESTERONE ACETATE
     Indication: Contraception

REACTIONS (5)
  - Incorrect dose administered by device [Unknown]
  - Wrong technique in device usage process [Unknown]
  - Product administration error [Unknown]
  - Device delivery system issue [Unknown]
  - Injection site discharge [Unknown]

NARRATIVE: CASE EVENT DATE: 20231214
